FAERS Safety Report 24235156 (Version 1)
Quarter: 2024Q3

REPORT INFORMATION
  Report Type: Spontaneous
  Country: US (occurrence: US)
  Receive Date: 20240821
  Receipt Date: 20240821
  Transmission Date: 20241016
  Serious: No
  Sender: Harrow Health
  Company Number: US-IMP-2024000285

PATIENT
  Sex: Female

DRUGS (1)
  1. POLYVINYL ALCOHOL\POVIDONE [Suspect]
     Active Substance: POLYVINYL ALCOHOL\POVIDONE
     Indication: Dry eye
     Dosage: 1 DROP BOTH EYES TWICE A DAY,?DROPS WERE USED BEFORE BED
     Route: 065
     Dates: start: 20240510, end: 20240511

REACTIONS (2)
  - Eye pruritus [Recovered/Resolved]
  - Eye swelling [Recovered/Resolved]

NARRATIVE: CASE EVENT DATE: 20240510
